FAERS Safety Report 14879196 (Version 1)
Quarter: 2018Q2

REPORT INFORMATION
  Report Type: Spontaneous
  Country: US (occurrence: US)
  Receive Date: 20180425
  Receipt Date: 20180425
  Transmission Date: 20180711
  Serious: Yes (Other)
  Sender: FDA-Public Use
  Company Number: None

PATIENT
  Sex: Male

DRUGS (1)
  1. WALGREENS COOL N HEAT MUSCLE AND JOINT PAIN RELIEF EXTRA STRENGTH [Suspect]
     Active Substance: MENTHOL\METHYL SALICYLATE
     Indication: ANALGESIC THERAPY

REACTIONS (1)
  - Application site burn [None]

NARRATIVE: CASE EVENT DATE: 20180312
